FAERS Safety Report 7249004-4 (Version None)
Quarter: 2011Q1

REPORT INFORMATION
  Report Type: 
  Country: None (occurrence: None)
  Receive Date: 20110128
  Receipt Date: 20110120
  Transmission Date: 20110831
  Serious: Yes (Life-Threatening, Hospitalization, Disabling)
  Sender: FDA-Public Use
  Company Number: FR-BRISTOL-MYERS SQUIBB COMPANY-15503402

PATIENT
  Age: 51 Year
  Sex: Male
  Weight: 89 kg

DRUGS (7)
  1. METHYLPREDNISOLONE [Concomitant]
  2. ETOPOSIDE [Suspect]
     Route: 065
     Dates: start: 20031229, end: 20040102
  3. NEULASTA [Suspect]
     Indication: CHEMOTHERAPY
     Route: 058
     Dates: start: 20040106, end: 20040106
  4. BLEOMYCIN SULFATE [Suspect]
     Route: 065
     Dates: start: 20031229, end: 20040105
  5. CISPLATIN [Suspect]
     Route: 065
     Dates: start: 20031229, end: 20040102
  6. METOCLOPRAMIDE HYDROCHLORIDE [Concomitant]
     Dates: start: 20031229, end: 20040106
  7. ZOPHREN [Concomitant]
     Dates: start: 20031229, end: 20040106

REACTIONS (7)
  - ARTERIAL THROMBOSIS [None]
  - ISCHAEMIA [None]
  - VOMITING [None]
  - RENAL FAILURE [None]
  - DEHYDRATION [None]
  - BONE MARROW FAILURE [None]
  - GANGRENE [None]
